FAERS Safety Report 16667757 (Version 1)
Quarter: 2019Q3

REPORT INFORMATION
  Report Type: Spontaneous
  Country: JP (occurrence: JP)
  Receive Date: 20190805
  Receipt Date: 20190805
  Transmission Date: 20191004
  Serious: Yes (Other)
  Sender: FDA-Public Use
  Company Number: JP-NOVOPROD-674240

PATIENT
  Sex: Male

DRUGS (6)
  1. TRESIBA [Suspect]
     Active Substance: INSULIN DEGLUDEC
     Dosage: UNK (DOSE DECREASED)
     Route: 058
  2. TRESIBA [Suspect]
     Active Substance: INSULIN DEGLUDEC
     Dosage: 9 IU,(DOSE INCREASED)
     Route: 058
  3. TRESIBA [Suspect]
     Active Substance: INSULIN DEGLUDEC
     Indication: DIABETES MELLITUS
     Dosage: 9IU/BED TIME
     Route: 058
  4. NOVORAPID [Suspect]
     Active Substance: INSULIN ASPART
     Indication: DIABETES MELLITUS
     Dosage: 14 IU (4-5-5)BEFORE MEAL
     Route: 058
  5. NOVORAPID [Suspect]
     Active Substance: INSULIN ASPART
     Dosage: 14 IU (4-5-5)BEFORE MEAL
     Route: 058
  6. NOVORAPID [Suspect]
     Active Substance: INSULIN ASPART
     Dosage: UNK (DOSE DECREASED)

REACTIONS (2)
  - Fracture [Recovered/Resolved]
  - Blood glucose increased [Unknown]
